FAERS Safety Report 7682069 (Version 4)
Quarter: 2013Q1

REPORT INFORMATION
  Report Type: Report from Study
  Country: JP (occurrence: JP)
  Receive Date: 20101124
  Receipt Date: 20130312
  Transmission Date: 20140127
  Serious: Yes (Death, Hospitalization, Disabling, Other)
  Sender: FDA-Public Use
  Company Number: PHHY2010JP79119

PATIENT
  Age: 78 Year
  Sex: Female

DRUGS (6)
  1. AFINITOR [Suspect]
     Indication: METASTATIC RENAL CELL CARCINOMA
     Dosage: 10 MG, DAILY
     Route: 048
     Dates: start: 20100813, end: 20100927
  2. INTERFERON ALFA [Concomitant]
     Indication: METASTATIC RENAL CELL CARCINOMA
     Dosage: 6000000 IU, UNK
     Dates: start: 20040322, end: 20070222
  3. TECELEUKIN [Concomitant]
     Indication: METASTATIC RENAL CELL CARCINOMA
     Dates: start: 20070531, end: 20080529
  4. SUNITINIB MALATE [Concomitant]
     Indication: METASTATIC RENAL CELL CARCINOMA
     Dosage: 37.5 DF, UNK
     Route: 048
     Dates: start: 20080610, end: 20090729
  5. SORAFENIB TOSILATE [Concomitant]
     Dosage: 800 DF, UNK
     Route: 048
     Dates: start: 20090903, end: 20100722
  6. ZITHROMAC [Concomitant]
     Indication: METASTATIC RENAL CELL CARCINOMA
     Dosage: 500 MG, UNK
     Route: 048
     Dates: start: 20100930, end: 20101002

REACTIONS (5)
  - Malignant neoplasm progression [Fatal]
  - Pneumonia [Not Recovered/Not Resolved]
  - Acute respiratory distress syndrome [Not Recovered/Not Resolved]
  - Aspartate aminotransferase increased [Unknown]
  - Alanine aminotransferase increased [Unknown]
